FAERS Safety Report 6187015-0 (Version None)
Quarter: 2009Q2

REPORT INFORMATION
  Report Type: 
  Country: None (occurrence: None)
  Receive Date: 20090512
  Receipt Date: 20090428
  Transmission Date: 20091009
  Serious: Yes (Other)
  Sender: FDA-Public Use
  Company Number: JP-BAYER-200911366BYL

PATIENT
  Age: 37 Year
  Sex: Female
  Weight: 45 kg

DRUGS (7)
  1. FLUDARA [Suspect]
     Indication: DIFFUSE LARGE B-CELL LYMPHOMA STAGE IV
     Dosage: AS USED: 25 MG/M2  UNIT DOSE: 50 MG
     Route: 042
     Dates: start: 20080701, end: 20080705
  2. ALKERAN [Concomitant]
     Indication: DIFFUSE LARGE B-CELL LYMPHOMA STAGE IV
     Dosage: AS USED: 70 MG/M2
     Route: 042
     Dates: start: 20080704, end: 20080705
  3. CYLOCIDE [Concomitant]
     Indication: DIFFUSE LARGE B-CELL LYMPHOMA STAGE IV
     Dosage: AS USED: 25 MG
     Route: 037
     Dates: start: 20080630, end: 20080630
  4. PREDONINE INJ [Concomitant]
     Indication: DIFFUSE LARGE B-CELL LYMPHOMA STAGE IV
     Dosage: AS USED: 20 MG
     Route: 037
     Dates: start: 20080630, end: 20080630
  5. METHOTREXATE [Concomitant]
     Indication: DIFFUSE LARGE B-CELL LYMPHOMA STAGE IV
     Dosage: AS USED: 12 MG
     Route: 037
     Dates: start: 20080630, end: 20080630
  6. CONCENTRATED RED CELLS [Concomitant]
     Indication: PACKED RED BLOOD CELL TRANSFUSION
     Route: 042
     Dates: start: 20080702, end: 20081002
  7. PLATELETS [Concomitant]
     Indication: PLATELET TRANSFUSION
     Route: 042
     Dates: start: 20080702, end: 20081106

REACTIONS (2)
  - ACUTE GRAFT VERSUS HOST DISEASE [None]
  - SEPSIS [None]
